FAERS Safety Report 14331724 (Version 1)
Quarter: 2017Q4

REPORT INFORMATION
  Report Type: Spontaneous
  Country: US (occurrence: US)
  Receive Date: 20171228
  Receipt Date: 20171228
  Transmission Date: 20180321
  Serious: Yes (Other)
  Sender: FDA-Public Use
  Company Number: US-NAPPMUNDI-USA-2017-0142187

PATIENT
  Sex: Male

DRUGS (5)
  1. COCAINE [Suspect]
     Active Substance: COCAINE
     Indication: DRUG ABUSE
     Dosage: UNK
     Route: 065
  2. OXYCONTIN [Suspect]
     Active Substance: OXYCODONE HYDROCHLORIDE
     Indication: DRUG ABUSE
     Dosage: UNK
     Route: 048
  3. LSD [Suspect]
     Active Substance: LYSERGIDE
     Indication: DRUG ABUSE
     Dosage: UNK
     Route: 065
  4. MARIJUANA [Suspect]
     Active Substance: CANNABIS SATIVA SUBSP. INDICA TOP
     Indication: DRUG ABUSE
     Dosage: UNK
     Route: 065
  5. XANAX [Suspect]
     Active Substance: ALPRAZOLAM
     Indication: DRUG ABUSE
     Dosage: UNK
     Route: 065

REACTIONS (4)
  - Substance abuse [Unknown]
  - Anger [Unknown]
  - Loss of consciousness [Unknown]
  - Physical assault [Unknown]

NARRATIVE: CASE EVENT DATE: 20160111
